FAERS Safety Report 5391217-0 (Version None)
Quarter: 2007Q3

REPORT INFORMATION
  Report Type: 
  Country: None (occurrence: None)
  Receive Date: 20070717
  Receipt Date: 20070709
  Transmission Date: 20080115
  Serious: Yes (Hospitalization)
  Sender: FDA-Public Use
  Company Number: 163-20785-07010670

PATIENT
  Age: 56 Year
  Sex: Female

DRUGS (2)
  1. THALOMID [Suspect]
     Indication: MULTIPLE MYELOMA
     Dosage: 100-50MG; 200 MG, 1 IN 1 D, ORAL
     Route: 048
     Dates: start: 20051018, end: 20051024
  2. THALOMID [Suspect]
     Indication: MULTIPLE MYELOMA
     Dosage: 100-50MG; 200 MG, 1 IN 1 D, ORAL
     Route: 048
     Dates: start: 20051116, end: 20070110

REACTIONS (2)
  - MEMORY IMPAIRMENT [None]
  - OVERDOSE [None]
